FAERS Safety Report 22888839 (Version 3)
Quarter: 2023Q4

REPORT INFORMATION
  Report Type: Report from Study
  Country: CA (occurrence: CA)
  Receive Date: 20230831
  Receipt Date: 20231107
  Transmission Date: 20240110
  Serious: Yes (Other)
  Sender: FDA-Public Use
  Company Number: CA-BoehringerIngelheim-2022-BI-169856

PATIENT
  Age: 56 Year
  Sex: Female
  Weight: 78 kg

DRUGS (2)
  1. OFEV [Suspect]
     Active Substance: NINTEDANIB
     Indication: Idiopathic pulmonary fibrosis
     Route: 048
     Dates: start: 20220509, end: 20220525
  2. OFEV [Suspect]
     Active Substance: NINTEDANIB
     Route: 048
     Dates: start: 20220627

REACTIONS (59)
  - Gingival cancer [Unknown]
  - Pulmonary haemorrhage [Not Recovered/Not Resolved]
  - Weight decreased [Not Recovered/Not Resolved]
  - Illness [Unknown]
  - Diarrhoea [Not Recovered/Not Resolved]
  - Vomiting [Not Recovered/Not Resolved]
  - Flatulence [Not Recovered/Not Resolved]
  - Hypersomnia [Not Recovered/Not Resolved]
  - Contusion [Unknown]
  - Chromaturia [Unknown]
  - Pain [Not Recovered/Not Resolved]
  - Malaise [Unknown]
  - Retching [Unknown]
  - Butterfly rash [Unknown]
  - Eye pruritus [Unknown]
  - Pruritus [Unknown]
  - Lacrimation increased [Unknown]
  - Scab [Unknown]
  - Nausea [Not Recovered/Not Resolved]
  - Abdominal pain upper [Unknown]
  - Constipation [Unknown]
  - Alopecia [Unknown]
  - Inappropriate schedule of product administration [Unknown]
  - Cough [Unknown]
  - Oxygen saturation decreased [Unknown]
  - Radiation injury [Unknown]
  - Hyperhidrosis [Unknown]
  - Asthenia [Unknown]
  - Chronic obstructive pulmonary disease [Unknown]
  - Emphysema [Unknown]
  - Asthenia [Recovered/Resolved]
  - Pyrexia [Recovered/Resolved]
  - Anxiety [Unknown]
  - Dyspnoea exertional [Not Recovered/Not Resolved]
  - Fatigue [Not Recovered/Not Resolved]
  - Dyspepsia [Not Recovered/Not Resolved]
  - Hypertension [Not Recovered/Not Resolved]
  - Sinus headache [Not Recovered/Not Resolved]
  - Haemoptysis [Not Recovered/Not Resolved]
  - Ear discomfort [Recovered/Resolved]
  - Peripheral coldness [Recovered/Resolved]
  - Chest pain [Recovered/Resolved]
  - Pain [Recovered/Resolved]
  - Cold sweat [Recovered/Resolved]
  - Feeling abnormal [Recovering/Resolving]
  - Fibromyalgia [Not Recovered/Not Resolved]
  - Gastrointestinal disorder [Not Recovered/Not Resolved]
  - Tremor [Not Recovered/Not Resolved]
  - Palpitations [Not Recovered/Not Resolved]
  - Back pain [Recovered/Resolved]
  - Dyspepsia [Not Recovered/Not Resolved]
  - Pyrexia [Unknown]
  - Sunburn [Unknown]
  - Increased upper airway secretion [Unknown]
  - Blister [Unknown]
  - Oral infection [Unknown]
  - Localised infection [Unknown]
  - Fall [Unknown]
  - Haemorrhage [Recovered/Resolved]

NARRATIVE: CASE EVENT DATE: 20220101
